FAERS Safety Report 9302942 (Version 2)
Quarter: 2013Q3

REPORT INFORMATION
  Report Type: Spontaneous
  Country: US (occurrence: US)
  Receive Date: 20130522
  Receipt Date: 20130717
  Transmission Date: 20140515
  Serious: Yes (Hospitalization, Other)
  Sender: FDA-Public Use
  Company Number: US-NOVOPROD-378162

PATIENT
  Age: 75 Year
  Sex: Female
  Weight: 56.69 kg

DRUGS (3)
  1. NOVOLOG MIX 70/30 FLEXPEN [Suspect]
     Indication: TYPE 1 DIABETES MELLITUS
     Dosage: SLIDING SCALE
     Route: 058
  2. NOVOLOG PENFILL [Suspect]
     Indication: TYPE 1 DIABETES MELLITUS
     Dosage: SLIDING SCALE
     Route: 058
  3. LANTUS [Suspect]
     Indication: TYPE 1 DIABETES MELLITUS
     Dosage: 28 U, QD
     Route: 058

REACTIONS (2)
  - Kidney infection [Recovered/Resolved]
  - Blood glucose increased [Recovered/Resolved]
